FAERS Safety Report 4840454-X (Version None)
Quarter: 2005Q4

REPORT INFORMATION
  Report Type: 
  Country: None (occurrence: None)
  Receive Date: 20051129
  Receipt Date: 20051129
  Transmission Date: 20060501
  Serious: Yes (Hospitalization)
  Sender: FDA-Public Use
  Company Number: None

PATIENT
  Sex: Female

DRUGS (6)
  1. CAPECITABINE [Suspect]
     Indication: CHEMOTHERAPY
     Dosage: 3000MG/M2/DAY BID FOR 14 DOSES
     Dates: start: 20051102, end: 20051109
  2. OXALIPLATIN [Suspect]
     Indication: CHEMOTHERAPY
     Dosage: 85MG/M2 IV Q 2 WEEKS
     Route: 042
     Dates: start: 20051102
  3. PRILOSEC [Concomitant]
  4. LIPITOR [Concomitant]
  5. NORVASC [Concomitant]
  6. ATENOLOL [Concomitant]

REACTIONS (5)
  - DEHYDRATION [None]
  - DIARRHOEA [None]
  - HYPOKALAEMIA [None]
  - HYPOMAGNESAEMIA [None]
  - NAUSEA [None]
